FAERS Safety Report 8255820-2 (Version None)
Quarter: 2012Q1

REPORT INFORMATION
  Report Type: 
  Country: None (occurrence: None)
  Receive Date: 20120329
  Receipt Date: 20120317
  Transmission Date: 20120608
  Serious: Yes (Other)
  Sender: FDA-Public Use
  Company Number: PHHO2008DK07563

PATIENT
  Age: 79 Year
  Sex: Female

DRUGS (4)
  1. LUCENTIS [Suspect]
     Indication: CHOROIDAL NEOVASCULARISATION
     Dates: start: 20080613, end: 20080613
  2. LUCENTIS [Suspect]
     Indication: AGE-RELATED MACULAR DEGENERATION
     Dates: start: 20080613, end: 20080613
  3. VISUDYNE [Suspect]
     Indication: CHOROIDAL NEOVASCULARISATION
     Dosage: 6 MG/M^2 ONCE IV
     Route: 042
     Dates: start: 20080613, end: 20080613
  4. VISUDYNE [Suspect]
     Indication: AGE-RELATED MACULAR DEGENERATION
     Dosage: 6 MG/M^2 ONCE IV
     Route: 042
     Dates: start: 20080613, end: 20080613

REACTIONS (3)
  - VISUAL ACUITY REDUCED [None]
  - RETINAL OEDEMA [None]
  - VISUAL FIELD DEFECT [None]
